FAERS Safety Report 17956663 (Version 1)
Quarter: 2020Q2

REPORT INFORMATION
  Report Type: Spontaneous
  Country: US (occurrence: US)
  Receive Date: 20200627
  Receipt Date: 20200627
  Transmission Date: 20200714
  Serious: Yes (Other)
  Sender: FDA-Public Use
  Company Number: None

PATIENT
  Age: 2 Year
  Sex: Female

DRUGS (1)
  1. MULTIVITAMIN AND FLUORIDE 0.25MG CHEWABLE TABLET (GENERIC POLY-VI-FLOR) [Suspect]
     Active Substance: SODIUM FLUORIDE\VITAMINS
     Indication: VITAMIN SUPPLEMENTATION
     Dosage: ?          QUANTITY:1 TABLET(S);?
     Route: 048
     Dates: start: 20200627, end: 20200627

REACTIONS (6)
  - Erythema [None]
  - Feeling hot [None]
  - Abnormal behaviour [None]
  - Abdominal pain upper [None]
  - Urticaria [None]
  - Rash [None]

NARRATIVE: CASE EVENT DATE: 20200627
